FAERS Safety Report 6431978-2 (Version None)
Quarter: 2009Q4

REPORT INFORMATION
  Report Type: 
  Country: None (occurrence: None)
  Receive Date: 20091109
  Receipt Date: 20091030
  Transmission Date: 20100525
  Serious: Yes (Other)
  Sender: FDA-Public Use
  Company Number: IE-WYE-G04402009

PATIENT
  Sex: Female
  Weight: 61 kg

DRUGS (13)
  1. RELISTOR [Suspect]
     Indication: CONSTIPATION
     Dosage: 8MG (0.4ML) ONCE
     Route: 058
     Dates: start: 20090906, end: 20090906
  2. LAXOBERAL [Concomitant]
  3. TEMAZEPAM [Concomitant]
     Route: 048
  4. OMEPRAZOLE [Concomitant]
  5. MILPAR [Concomitant]
  6. ORAMORPH SR [Concomitant]
     Dosage: 15MG WHEN REQUIRED FOUR TIMES DAILY
  7. OXYNORM [Concomitant]
     Dosage: 20-50 MG AS REQUIRED
     Route: 058
  8. ALPRAZOLAM [Concomitant]
     Dosage: 0.25 - 0.5 FOUR TIMES DAILY WHEN REQUIRED
  9. ATIVAN [Concomitant]
     Dosage: 0.5MG WHEN REQUIRED
  10. ENOXAPARIN SODIUM [Concomitant]
     Dosage: (DOSE UNKNOWN) ONCE DAILY
     Route: 058
  11. LYRICA [Concomitant]
     Route: 048
  12. AMITRIPTYLINE [Concomitant]
     Route: 048
  13. NULYTELY [Concomitant]

REACTIONS (4)
  - ABDOMINAL RIGIDITY [None]
  - ANXIETY [None]
  - CHEST PAIN [None]
  - EMOTIONAL DISTRESS [None]
